FAERS Safety Report 12775376 (Version 1)
Quarter: 2016Q3

REPORT INFORMATION
  Report Type: Spontaneous
  Country: US (occurrence: US)
  Receive Date: 20160922
  Receipt Date: 20160922
  Transmission Date: 20161109
  Serious: Yes (Other)
  Sender: FDA-Public Use
  Company Number: None

PATIENT
  Sex: Female
  Weight: 57.61 kg

DRUGS (1)
  1. RECLAST [Suspect]
     Active Substance: ZOLEDRONIC ACID
     Dosage: YEARLY

REACTIONS (2)
  - Erosive oesophagitis [None]
  - Peptic ulcer [None]

NARRATIVE: CASE EVENT DATE: 2013
